APPROVED DRUG PRODUCT: ETODOLAC
Active Ingredient: ETODOLAC
Strength: 500MG
Dosage Form/Route: TABLET;ORAL
Application: A210704 | Product #002 | TE Code: AB
Applicant: PHARMACO LLC
Approved: Dec 16, 2020 | RLD: No | RS: No | Type: RX